FAERS Safety Report 9532114 (Version 2)
Quarter: 2013Q3

REPORT INFORMATION
  Report Type: Spontaneous
  Country: NL (occurrence: NL)
  Receive Date: 20130918
  Receipt Date: 20130918
  Transmission Date: 20140515
  Serious: Yes (Other)
  Sender: FDA-Public Use
  Company Number: NL-PFIZER INC-2013261930

PATIENT
  Sex: Female

DRUGS (1)
  1. PHENELZINE SULFATE [Suspect]
     Dosage: 15 MG, EVERY OTHER DAY

REACTIONS (3)
  - Derealisation [Unknown]
  - Depressed level of consciousness [Unknown]
  - Headache [Unknown]
